FAERS Safety Report 8877634 (Version 1)
Quarter: 2012Q4

REPORT INFORMATION
  Report Type: Spontaneous
  Country: US (occurrence: None)
  Receive Date: 20121031
  Receipt Date: 20121031
  Transmission Date: 20130627
  Serious: No
  Sender: FDA-Public Use
  Company Number: None

PATIENT
  Age: 26 Year
  Sex: Female

DRUGS (1)
  1. CLONAZEPAM [Suspect]
     Indication: PANIC DISORDER WITH AGORAPHOBIA
     Dosage: up to 3x/day
     Route: 048
     Dates: start: 20121016, end: 20121024

REACTIONS (2)
  - Drug ineffective [None]
  - Product substitution issue [None]
